FAERS Safety Report 18906066 (Version 1)
Quarter: 2021Q1

REPORT INFORMATION
  Report Type: Report from Study
  Country: US (occurrence: US)
  Receive Date: 20210217
  Receipt Date: 20210217
  Transmission Date: 20210420
  Serious: Yes (Death)
  Sender: FDA-Public Use
  Company Number: US-SEATTLE GENETICS-2020SGN05003

PATIENT
  Sex: Female

DRUGS (2)
  1. TUCATINIB [Suspect]
     Active Substance: TUCATINIB
     Indication: BREAST CANCER FEMALE
     Dosage: UNK
     Route: 048
  2. TUCATINIB [Suspect]
     Active Substance: TUCATINIB
     Dosage: UNK
     Route: 048

REACTIONS (2)
  - Nausea [Unknown]
  - Death [Fatal]
